FAERS Safety Report 23757270 (Version 2)
Quarter: 2024Q2

REPORT INFORMATION
  Report Type: Spontaneous
  Country: US (occurrence: US)
  Receive Date: 20240418
  Receipt Date: 20240619
  Transmission Date: 20240715
  Serious: Yes (Other)
  Sender: FDA-Public Use
  Company Number: US-FreseniusKabi-FK202406069

PATIENT
  Age: 14 Year
  Sex: Male
  Weight: 78.7 kg

DRUGS (2)
  1. DIPRIVAN [Suspect]
     Active Substance: ISOPROPYL ALCOHOL\PROPOFOL
     Indication: Sedative therapy
     Dosage: FORM OF ADMIN: INJECTABLE EMULSION?PROPOFOL (DIPRIVAN) 10 MG/ML?IV CONTINUOUS INFUSION: 100 ML ? 300
  2. DIPRIVAN [Suspect]
     Active Substance: ISOPROPYL ALCOHOL\PROPOFOL
     Dosage: FORM OF ADMIN: INJECTABLE EMULSION?IV BOLUS: 100 MG AT 0929, 50 MG AT 0931; 50 MG AT 0933; 50 MG AT

REACTIONS (8)
  - Airway complication of anaesthesia [Recovered/Resolved]
  - Cough [Recovered/Resolved]
  - Oxygen saturation decreased [Recovered/Resolved]
  - Use of accessory respiratory muscles [Recovered/Resolved]
  - Laryngospasm [Recovered/Resolved]
  - Bronchospasm [Recovered/Resolved]
  - Retching [Recovered/Resolved]
  - Therapeutic product effect decreased [Unknown]

NARRATIVE: CASE EVENT DATE: 20240401
